FAERS Safety Report 15404493 (Version 1)
Quarter: 2018Q4

REPORT INFORMATION
  Report Type: Spontaneous
  Country: None (occurrence: US)
  Receive Date: 20180919
  Receipt Date: 20180919
  Transmission Date: 20190204
  Serious: Yes (Death)
  Sender: FDA-Public Use
  Company Number: US-PRESTIGE BRANDS -2055152

PATIENT
  Age: 64 Year
  Sex: Male

DRUGS (1)
  1. TETRAHYDROZOLINE HCL(TETRAHYDROZOLINE ???HYDROCHLORIDE)(EYE DROPS) [Suspect]
     Active Substance: TETRAHYDROZOLINE HYDROCHLORIDE
     Indication: POISONING DELIBERATE
     Route: 048

REACTIONS (3)
  - Accidental exposure to product [Fatal]
  - Poisoning deliberate [Fatal]
  - Death [Fatal]
